FAERS Safety Report 11872765 (Version 1)
Quarter: 2015Q4

REPORT INFORMATION
  Report Type: Spontaneous
  Country: US (occurrence: US)
  Receive Date: 20151228
  Receipt Date: 20151228
  Transmission Date: 20160305
  Serious: No
  Sender: FDA-Public Use
  Company Number: US-PFIZER INC-2015431794

PATIENT
  Sex: Female

DRUGS (1)
  1. LYRICA [Suspect]
     Active Substance: PREGABALIN
     Dosage: 50 MG, 3X/DAY (ONE IN THE MORNING, ONE IN THE NIGHT AND ONE IN THE MORNING )

REACTIONS (3)
  - Hypoaesthesia [Unknown]
  - Movement disorder [Unknown]
  - Drug ineffective [Unknown]
